FAERS Safety Report 7709316-4 (Version None)
Quarter: 2011Q3

REPORT INFORMATION
  Report Type: 
  Country: None (occurrence: None)
  Receive Date: 20110819
  Receipt Date: 20110809
  Transmission Date: 20111222
  Serious: Yes (Hospitalization)
  Sender: FDA-Public Use
  Company Number: B0739745A

PATIENT
  Age: 70 Year
  Sex: Male

DRUGS (1)
  1. DIGOXIN [Suspect]

REACTIONS (4)
  - RENAL FAILURE ACUTE [None]
  - HYPOTENSION [None]
  - CONTINUOUS HAEMODIAFILTRATION [None]
  - TOXICITY TO VARIOUS AGENTS [None]
